FAERS Safety Report 7401959-0 (Version None)
Quarter: 2011Q1

REPORT INFORMATION
  Report Type: 
  Country: None (occurrence: None)
  Receive Date: 20110330
  Receipt Date: 20110318
  Transmission Date: 20110831
  Serious: Yes (Hospitalization)
  Sender: FDA-Public Use
  Company Number: 2011AP000491

PATIENT
  Age: 64 Year
  Sex: Male

DRUGS (2)
  1. TAMSULOSIN HCL [Concomitant]
  2. APO-LEVOCARB (LEVODOPA/CARBIDOPA) [Suspect]
     Indication: PARKINSON'S DISEASE
     Dosage: 120 TAB;QD; PO
     Route: 048
     Dates: start: 20031201

REACTIONS (4)
  - HYPERHIDROSIS [None]
  - DROOLING [None]
  - LOSS OF CONSCIOUSNESS [None]
  - URINARY INCONTINENCE [None]
